FAERS Safety Report 8818813 (Version 1)
Quarter: 2012Q4

REPORT INFORMATION
  Report Type: 
  Country: FR (occurrence: FR)
  Receive Date: 20121001
  Receipt Date: 20121001
  Transmission Date: 20130627
  Serious: Yes (Life-Threatening, Hospitalization)
  Sender: FDA-Public Use
  Company Number: PHHY2012FR084967

PATIENT
  Age: 51 Year
  Sex: Male
  Weight: 100 kg

DRUGS (11)
  1. TASIGNA [Suspect]
     Indication: CHRONIC MYELOID LEUKAEMIA
     Dosage: 400 mg, BID
     Route: 048
     Dates: start: 20080105, end: 20100624
  2. LANTUS [Concomitant]
     Indication: DIABETES MELLITUS
     Dosage: 12 U, QD
     Route: 058
  3. TAHOR [Concomitant]
     Indication: DYSLIPIDAEMIA
     Dosage: 80 mg, QD
     Route: 048
  4. LASILIX [Concomitant]
     Dosage: 0.25 mg, QD
  5. KARDEGIC [Concomitant]
  6. PLAVIX [Concomitant]
     Dosage: 1 DF, QD
     Route: 048
  7. BISOPROLOL [Concomitant]
     Indication: CARDIAC FAILURE
     Dosage: 10 mg, daily
     Route: 048
  8. LEVOTHYROX [Concomitant]
     Indication: HYPOTHYROIDISM
     Dosage: 82.5 ug, UNK
  9. TRIATEC [Concomitant]
     Indication: HYPERTENSION
     Dosage: 1.25 mg, daily
  10. MOPRAL [Concomitant]
     Indication: ULCER
     Dosage: 20 mg, UNK
  11. STILNOX [Concomitant]

REACTIONS (5)
  - Viral myocarditis [Recovering/Resolving]
  - Chills [Recovering/Resolving]
  - Hypothermia [Recovering/Resolving]
  - Cardiogenic shock [Recovering/Resolving]
  - Arterial stenosis [Recovering/Resolving]
